FAERS Safety Report 11433891 (Version 2)
Quarter: 2015Q3

REPORT INFORMATION
  Report Type: Report from Study
  Country: US (occurrence: US)
  Receive Date: 20150831
  Receipt Date: 20150904
  Transmission Date: 20151125
  Serious: Yes (Hospitalization)
  Sender: FDA-Public Use
  Company Number: US-ROCHE-1627341

PATIENT
  Age: 14 Year
  Sex: Male
  Weight: 28.3 kg

DRUGS (5)
  1. SODIUM ACETATE. [Concomitant]
     Active Substance: SODIUM ACETATE
  2. CALCITRIOL. [Concomitant]
     Active Substance: CALCITRIOL
     Dosage: 1 CAPSULE ONCE DAILY
     Route: 048
  3. NORDITROPIN [Suspect]
     Active Substance: SOMATROPIN
     Indication: CHRONIC KIDNEY DISEASE
     Route: 065
  4. CEFDINIR. [Concomitant]
     Active Substance: CEFDINIR
     Route: 048
  5. SODIUM BICARBONATE. [Concomitant]
     Active Substance: SODIUM BICARBONATE
     Dosage: 1 TABLET 3 TIMES A DAY
     Route: 048
     Dates: start: 20150714, end: 20150721

REACTIONS (1)
  - Pyelonephritis [Recovered/Resolved]

NARRATIVE: CASE EVENT DATE: 201506
